FAERS Safety Report 10365488 (Version 1)
Quarter: 2014Q1

REPORT INFORMATION
  Report Type: Spontaneous
  Country: US (occurrence: None)
  Receive Date: 20140306
  Receipt Date: 20140306
  Transmission Date: 20141002
  Serious: Yes (Other)
  Sender: FDA-Public Use
  Company Number: 163-21880-13093741

PATIENT
  Age: 78 Year
  Sex: Male
  Weight: 78.02 kg

DRUGS (18)
  1. REVLIMID (LENALIDOMIDE) (15 MILLIGRAM, CAPSULES) [Suspect]
     Indication: PLASMA CELL MYELOMA
     Route: 048
     Dates: start: 201202
  2. COMPAZINE (PROCHLORPERAZINE EDISYLATE) (UNKOWN) [Concomitant]
  3. DEXAMETHASONE (UNKNOWN) [Concomitant]
  4. ACYCLOVIR (ACICLOVIR) (UNKNOWN) [Concomitant]
  5. ACTOS (PIOGLITAZONE HYDROCHLORIDE) (UNKNOWN) [Concomitant]
  6. GLYBURIDE (GLIBENCLAMIDE) (UNKNOWN) [Concomitant]
  7. SIMVASTATIN (UNKNOWN) [Concomitant]
  8. BAYER ASPIRIN (ACETYLSALICYLIC ACID) (UNKNOWN) [Concomitant]
  9. FISH OIL (UNKNOWN) [Concomitant]
  10. LANTUS (INSULIN GLARGINE) (UNKNOWN) [Concomitant]
  11. NOVOLOG (INSULIN ASPART) (UNKNOWN) [Concomitant]
  12. FUROSEMIDE (UNKNOWN) [Concomitant]
  13. VITAMIN D (ERGOCALCIFEROL) (UNKNOWN) [Concomitant]
  14. NIACIN (NICOTINIC ACID) (UNKNOWN) [Concomitant]
  15. CALCIUM (UNKNOWN) [Concomitant]
  16. LEVOTHYROXINE (UNKNOWN) [Concomitant]
  17. FOSAMAX (ALENDRONATE SODIUM) (UNKNOWN) [Concomitant]
  18. PROCRIT (ERYTHROPOIETIN) (UNKNOWN) [Concomitant]

REACTIONS (1)
  - Pancytopenia [None]
